FAERS Safety Report 20011651 (Version 2)
Quarter: 2024Q3

REPORT INFORMATION
  Report Type: Report from Study
  Country: US (occurrence: US)
  Receive Date: 20211029
  Receipt Date: 20240925
  Transmission Date: 20241017
  Serious: No
  Sender: GLAXOSMITHKLINE
  Company Number: US-GLAXOSMITHKLINE-US2021AMR221566

PATIENT
  Sex: Female

DRUGS (3)
  1. NIRAPARIB [Suspect]
     Active Substance: NIRAPARIB
     Indication: Ovarian cancer
     Dosage: 100 MG
     Dates: start: 202009
  2. LETROZOLE [Suspect]
     Active Substance: LETROZOLE
     Indication: Product used for unknown indication
     Dosage: UNK
  3. LETROZOLE [Suspect]
     Active Substance: LETROZOLE
     Dosage: UNK (DECREASED DOSE)

REACTIONS (5)
  - Arthralgia [Recovered/Resolved]
  - Palpitations [Recovered/Resolved]
  - Nausea [Unknown]
  - Product dose omission in error [Not Recovered/Not Resolved]
  - Off label use [Unknown]
